FAERS Safety Report 24535203 (Version 1)
Quarter: 2024Q4

REPORT INFORMATION
  Report Type: Report from Study
  Country: AT (occurrence: AT)
  Receive Date: 20241022
  Receipt Date: 20241022
  Transmission Date: 20250115
  Serious: Yes (Hospitalization)
  Sender: ABBVIE
  Company Number: AT-ABBVIE-5969884

PATIENT
  Age: 78 Year
  Sex: Female

DRUGS (1)
  1. FOSCARBIDOPA\FOSLEVODOPA [Suspect]
     Active Substance: FOSCARBIDOPA\FOSLEVODOPA
     Indication: Parkinson^s disease
     Dosage: CR 0.17ML/H; CRHIGH 0.20ML/H; CRLOW 0.15ML/H; ED 0.10ML
     Route: 058
     Dates: start: 20241001

REACTIONS (3)
  - General physical health deterioration [Recovered/Resolved]
  - Device kink [Recovered/Resolved]
  - Device occlusion [Unknown]

NARRATIVE: CASE EVENT DATE: 20241001
